FAERS Safety Report 4812475-4 (Version None)
Quarter: 2005Q4

REPORT INFORMATION
  Report Type: 
  Country: None (occurrence: None)
  Receive Date: 20051028
  Receipt Date: 20050203
  Transmission Date: 20060501
  Serious: No
  Sender: FDA-Public Use
  Company Number: US-GLAXOSMITHKLINE-A0543711A

PATIENT
  Age: 33 Year
  Sex: Female

DRUGS (5)
  1. ADVAIR DISKUS 100/50 [Suspect]
     Indication: ASTHMA
     Dosage: 1PUFF TWICE PER DAY
     Route: 055
     Dates: start: 20040901
  2. SINGULAIR [Concomitant]
  3. RHINOCORT [Concomitant]
  4. LEXAPRO [Concomitant]
  5. MULTI-VITAMIN [Concomitant]

REACTIONS (6)
  - BLEPHAROSPASM [None]
  - DRY MOUTH [None]
  - INCREASED APPETITE [None]
  - MUSCLE SPASMS [None]
  - POLLAKIURIA [None]
  - THIRST [None]
